FAERS Safety Report 4335934-X (Version None)
Quarter: 2004Q2

REPORT INFORMATION
  Report Type: 
  Country: None (occurrence: None)
  Receive Date: 20040408
  Receipt Date: 20040330
  Transmission Date: 20050107
  Serious: Yes (Hospitalization)
  Sender: FDA-Public Use
  Company Number: A-US2003-03942

PATIENT
  Age: 23 Year
  Sex: Male
  Weight: 45.4 kg

DRUGS (15)
  1. TRACLEER [Suspect]
     Indication: PULMONARY HYPERTENSION
     Dosage: SEE IMAGE
     Route: 048
     Dates: start: 20030131, end: 20030228
  2. TRACLEER [Suspect]
     Indication: PULMONARY HYPERTENSION
     Dosage: SEE IMAGE
     Route: 048
     Dates: start: 20030301, end: 20031016
  3. TRACLEER [Suspect]
     Indication: PULMONARY HYPERTENSION
     Dosage: SEE IMAGE
     Route: 048
     Dates: start: 20031020, end: 20031031
  4. COUMADIN [Concomitant]
  5. FLOLAN [Concomitant]
  6. ASPIRIN [Concomitant]
  7. PANTOPRAZOLE [Concomitant]
  8. IMODIUM A-D [Concomitant]
  9. LASIX [Concomitant]
  10. K-DUR 10 [Concomitant]
  11. PHENERGAN ^WYETH- A- AYERST ^ [Concomitant]
  12. TYLENOL [Concomitant]
  13. CALCIUM WITH VITAMIN D [Concomitant]
  14. BENADRYL [Concomitant]
  15. ACTINAL ( CYPROHEPTADINE HYDROCHLORIDE ) [Concomitant]

REACTIONS (12)
  - ASCITES [None]
  - CYANOSIS [None]
  - DISEASE PROGRESSION [None]
  - DYSPNOEA [None]
  - DYSPNOEA EXERTIONAL [None]
  - FATIGUE [None]
  - FLUID RETENTION [None]
  - HEADACHE [None]
  - HYPOXIA [None]
  - OEDEMA PERIPHERAL [None]
  - PERICARDIAL EFFUSION [None]
  - PULMONARY HYPERTENSION [None]
